FAERS Safety Report 7979052-8 (Version None)
Quarter: 2011Q4

REPORT INFORMATION
  Report Type: 
  Country: None (occurrence: None)
  Receive Date: 20111214
  Receipt Date: 20111212
  Transmission Date: 20120403
  Serious: Yes (Other)
  Sender: FDA-Public Use
  Company Number: US-PFIZER INC-2011303136

PATIENT
  Sex: Male
  Weight: 81.633 kg

DRUGS (2)
  1. EFFEXOR [Suspect]
     Indication: DEPRESSION
     Dosage: 300MG IN MORNING AND 150MG IN EVENING
     Route: 048
     Dates: end: 20090501
  2. RISPERIDONE [Concomitant]
     Indication: DEPRESSION
     Dosage: 1 MG, UNK

REACTIONS (1)
  - RENAL IMPAIRMENT [None]
